FAERS Safety Report 9431955 (Version 1)
Quarter: 2013Q3

REPORT INFORMATION
  Report Type: Other
  Country: GB (occurrence: GB)
  Receive Date: 20130731
  Receipt Date: 20130731
  Transmission Date: 20140515
  Serious: Yes (Hospitalization, Other)
  Sender: FDA-Public Use
  Company Number: GB-BRISTOL-MYERS SQUIBB COMPANY-19152438

PATIENT
  Age: 36 Year
  Sex: Male

DRUGS (4)
  1. METFORMIN HCL [Suspect]
     Indication: TYPE 2 DIABETES MELLITUS
  2. FENOFIBRATE [Suspect]
     Indication: LIPIDS
     Dosage: 1DF:160MG TABS
  3. INSULIN [Suspect]
     Indication: TYPE 2 DIABETES MELLITUS
  4. ATORVASTATIN [Concomitant]
     Indication: LIPIDS ABNORMAL

REACTIONS (2)
  - Pancreatitis acute [Unknown]
  - Cholestasis [Recovering/Resolving]
